FAERS Safety Report 7716875-4 (Version None)
Quarter: 2011Q3

REPORT INFORMATION
  Report Type: 
  Country: None (occurrence: None)
  Receive Date: 20110829
  Receipt Date: 20110826
  Transmission Date: 20111222
  Serious: Yes (Death)
  Sender: FDA-Public Use
  Company Number: DE-BAYER-2011-078211

PATIENT
  Age: 91 Year
  Sex: Male
  Weight: 65 kg

DRUGS (7)
  1. MUCOSOLVAN [Concomitant]
  2. CEFTRIAXON [Concomitant]
     Indication: PNEUMONIA ASPIRATION
     Dosage: 1 DF, UNK
     Route: 042
     Dates: end: 20110824
  3. RAMIPRIL [Concomitant]
  4. TRAMAL LONG [Concomitant]
  5. ENOXAPARIN SODIUM [Concomitant]
  6. AVELOX [Suspect]
     Indication: PNEUMONIA ASPIRATION
     Dosage: UNK
     Route: 042
     Dates: start: 20110824, end: 20110824
  7. TORSEMIDE [Concomitant]

REACTIONS (1)
  - SUDDEN DEATH [None]
